FAERS Safety Report 11272614 (Version 1)
Quarter: 2015Q2

REPORT INFORMATION
  Report Type: Spontaneous
  Country: US (occurrence: None)
  Receive Date: 20150625
  Receipt Date: 20150625
  Transmission Date: 20150821
  Serious: No
  Sender: FDA-Public Use
  Company Number: A-US2015-115663

PATIENT
  Age: 73 Year
  Sex: Female

DRUGS (2)
  1. REVATIO (SILDENAFIL CITRATE) [Concomitant]
  2. OPSUMIT [Suspect]
     Active Substance: MACITENTAN
     Indication: PULMONARY ARTERIAL HYPERTENSION
     Route: 048
     Dates: start: 20150323

REACTIONS (6)
  - Dizziness [None]
  - Peripheral swelling [None]
  - Dry throat [None]
  - Dyspnoea [None]
  - Fatigue [None]
  - Chest discomfort [None]
